FAERS Safety Report 24769739 (Version 1)
Quarter: 2024Q4

REPORT INFORMATION
  Report Type: Spontaneous
  Country: CN (occurrence: CN)
  Receive Date: 20241224
  Receipt Date: 20241224
  Transmission Date: 20250114
  Serious: Yes (Death, Hospitalization)
  Sender: STRIDES
  Company Number: CN-STRIDES ARCOLAB LIMITED-2024SP016889

PATIENT
  Age: 17 Year
  Sex: Male

DRUGS (24)
  1. VANCOMYCIN [Suspect]
     Active Substance: VANCOMYCIN
     Indication: Anti-infective therapy
     Dosage: 1000 MILLIGRAM, EVERY 12 HRS
     Route: 065
     Dates: start: 2020
  2. CASPOFUNGIN [Suspect]
     Active Substance: CASPOFUNGIN
     Indication: Anti-infective therapy
     Dosage: 50 MILLIGRAM, OD
     Route: 065
     Dates: start: 2020
  3. PIPERACILLIN SODIUM\TAZOBACTAM SODIUM [Suspect]
     Active Substance: PIPERACILLIN SODIUM\TAZOBACTAM SODIUM
     Indication: Anti-infective therapy
     Dosage: 4.5 GRAM, EVERY 6 HRS
     Route: 065
     Dates: start: 2020
  4. TIGECYCLINE [Suspect]
     Active Substance: TIGECYCLINE
     Indication: Anti-infective therapy
     Dosage: 100 MILLIGRAM, EVERY 12 HRS
     Route: 065
     Dates: start: 2020
  5. FOSCARNET SODIUM [Suspect]
     Active Substance: FOSCARNET SODIUM
     Indication: Anti-infective therapy
     Dosage: 3 GRAM, EVERY 12 HRS
     Route: 065
     Dates: start: 2020
  6. VINCRISTINE [Concomitant]
     Active Substance: VINCRISTINE
     Indication: B-cell type acute leukaemia
     Dosage: UNK, CYCLICAL (AS A PART OF VILD REGIMEN)
     Route: 065
  7. VINCRISTINE [Concomitant]
     Active Substance: VINCRISTINE
     Indication: Chemotherapy
     Dosage: UNK, CYCLICAL (AS A PART OF HYPER CVAD REGIMEN)
     Route: 065
  8. VINCRISTINE [Concomitant]
     Active Substance: VINCRISTINE
     Dosage: UNK, CYCLICAL (AS A PART OF VILP REGIMEN)
     Route: 065
     Dates: start: 2020
  9. IDARUBICIN [Concomitant]
     Active Substance: IDARUBICIN
     Indication: B-cell type acute leukaemia
     Dosage: UNK, CYCLICAL (AS A PART OF VILD REGIMEN)
     Route: 065
  10. IDARUBICIN [Concomitant]
     Active Substance: IDARUBICIN
     Indication: Chemotherapy
     Dosage: UNK, CYCLICAL (AS A PART OF VILP REGIMEN)
     Route: 065
     Dates: start: 2020
  11. ASPARAGINASE [Concomitant]
     Active Substance: ASPARAGINASE
     Indication: B-cell type acute leukaemia
     Dosage: UNK, CYCLICAL (AS A PART OF VILD REGIMEN)
     Route: 065
  12. ASPARAGINASE [Concomitant]
     Active Substance: ASPARAGINASE
     Indication: Chemotherapy
     Dosage: UNK, CYCLICAL (AS A PART OF VILP REGIMEN)
     Route: 065
     Dates: start: 2020
  13. DEXAMETHASONE [Concomitant]
     Active Substance: DEXAMETHASONE
     Indication: B-cell type acute leukaemia
     Dosage: UNK, CYCLICAL (AS A PART OF VILD REGIMEN)
     Route: 065
  14. DEXAMETHASONE [Concomitant]
     Active Substance: DEXAMETHASONE
     Dosage: UNK, CYCLICAL (AS A PART OF HYPER CVAD REGIMEN)
     Route: 065
  15. CYCLOPHOSPHAMIDE [Concomitant]
     Active Substance: CYCLOPHOSPHAMIDE
     Indication: B-cell type acute leukaemia
     Dosage: UNK, CYCLICAL (AS A PART OF HYPER CVAD REGIMEN)
     Route: 065
  16. CYCLOPHOSPHAMIDE [Concomitant]
     Active Substance: CYCLOPHOSPHAMIDE
     Indication: Lymphodepletion
     Dosage: UNK
     Route: 065
     Dates: start: 202008
  17. DOXORUBICIN [Concomitant]
     Active Substance: DOXORUBICIN
     Indication: B-cell type acute leukaemia
     Dosage: UNK, CYCLICAL (AS A PART OF HYPER CVAD REGIMEN)
     Route: 065
  18. METHOTREXATE [Concomitant]
     Active Substance: METHOTREXATE
     Indication: B-cell type acute leukaemia
     Dosage: UNK, CYCLICAL (HIGH-DOSE)
     Route: 065
  19. CYTARABINE [Concomitant]
     Active Substance: CYTARABINE
     Indication: B-cell type acute leukaemia
     Dosage: UNK, CYCLICAL (HIGH-DOSE)
     Route: 065
  20. VORICONAZOLE [Concomitant]
     Active Substance: VORICONAZOLE
     Indication: Antifungal prophylaxis
     Dosage: UNK
     Route: 048
  21. PREDNISONE [Concomitant]
     Active Substance: PREDNISONE
     Indication: B-cell type acute leukaemia
     Dosage: UNK, CYCLICAL (AS A PART OF VILP REGIMEN)
     Route: 065
     Dates: start: 2020
  22. PREDNISONE [Concomitant]
     Active Substance: PREDNISONE
     Indication: Chemotherapy
  23. FLUDARABINE [Concomitant]
     Active Substance: FLUDARABINE PHOSPHATE
     Indication: Lymphodepletion
     Dosage: UNK
     Route: 065
     Dates: start: 202008
  24. TOCILIZUMAB [Concomitant]
     Active Substance: TOCILIZUMAB
     Indication: Cytokine release syndrome
     Dosage: UNK
     Route: 065
     Dates: start: 2020

REACTIONS (1)
  - Drug ineffective [Fatal]

NARRATIVE: CASE EVENT DATE: 20200101
